FAERS Safety Report 10756998 (Version 1)
Quarter: 2015Q1

REPORT INFORMATION
  Report Type: Spontaneous
  Country: DE (occurrence: DE)
  Receive Date: 20150203
  Receipt Date: 20150203
  Transmission Date: 20150721
  Serious: Yes (Congenital Anomaly, Other)
  Sender: FDA-Public Use
  Company Number: DE-DRREDDYS-GER/GER/15/0045753

PATIENT
  Age: 1 Day
  Sex: Male
  Weight: 3.05 kg

DRUGS (5)
  1. CITALOPRAM [Suspect]
     Active Substance: CITALOPRAM HYDROBROMIDE
     Indication: PRODUCT USED FOR UNKNOWN INDICATION
     Dosage: 20 MG/D UNTIL GW 36.5 AND 10 MG/D UNTIL DELIVERY.
     Route: 064
     Dates: start: 20140117, end: 20141107
  2. FOLSAN [Concomitant]
     Active Substance: FOLIC ACID
     Indication: PRODUCT USED FOR UNKNOWN INDICATION
     Route: 064
  3. QUILONUM RETARD [Suspect]
     Active Substance: LITHIUM CARBONATE
     Indication: PRODUCT USED FOR UNKNOWN INDICATION
     Route: 064
     Dates: start: 20140117, end: 20141107
  4. CLOZAPINE. [Suspect]
     Active Substance: CLOZAPINE
     Indication: PRODUCT USED FOR UNKNOWN INDICATION
     Route: 064
     Dates: start: 20140117, end: 20141107
  5. ANTI-D-IMMUNGLOBULIN VOM MENSCHEN [Concomitant]
     Indication: PRODUCT USED FOR UNKNOWN INDICATION
     Route: 064
     Dates: start: 20140610, end: 20140610

REACTIONS (5)
  - Foetal exposure during pregnancy [Unknown]
  - Small for dates baby [Unknown]
  - Atrial septal defect [Not Recovered/Not Resolved]
  - Ventricular septal defect [Not Recovered/Not Resolved]
  - Cyanosis [Unknown]

NARRATIVE: CASE EVENT DATE: 20141107
